FAERS Safety Report 18722786 (Version 1)
Quarter: 2021Q1

REPORT INFORMATION
  Report Type: Spontaneous
  Country: CA (occurrence: CA)
  Receive Date: 20210111
  Receipt Date: 20210111
  Transmission Date: 20210419
  Serious: Yes (Hospitalization)
  Sender: FDA-Public Use
  Company Number: CA-ACCORD-213567

PATIENT
  Age: 74 Year
  Sex: Male
  Weight: 100 kg

DRUGS (31)
  1. EZETIMIBE. [Concomitant]
     Active Substance: EZETIMIBE
  2. IRON [Concomitant]
     Active Substance: IRON
  3. SPIRONOLACTONE. [Concomitant]
     Active Substance: SPIRONOLACTONE
  4. TINZAPARIN/TINZAPARIN SODIUM [Concomitant]
     Active Substance: TINZAPARIN SODIUM
  5. SODIUM CHLORIDE. [Concomitant]
     Active Substance: SODIUM CHLORIDE
  6. METFORMIN [Concomitant]
     Active Substance: METFORMIN HYDROCHLORIDE
  7. POTASSIUM [Concomitant]
     Active Substance: POTASSIUM
  8. ROSUVASTATIN. [Concomitant]
     Active Substance: ROSUVASTATIN
  9. INSULIN HUMAN [Concomitant]
     Active Substance: INSULIN HUMAN
     Dosage: LIQUID INTRAMUSCULAR
  10. HYDROMORPHONE/HYDROMORPHONE HYDROCHLORIDE [Concomitant]
     Active Substance: HYDROMORPHONE
  11. NITROGLYCERIN. [Concomitant]
     Active Substance: NITROGLYCERIN
  12. NOVORAPID [Concomitant]
     Active Substance: INSULIN ASPART
     Dosage: SOLUTION SUBCUTANEOUS
  13. SODIUM BICARBONATE. [Concomitant]
     Active Substance: SODIUM BICARBONATE
     Dosage: LIQUID INTRAVENOUS
  14. PARACETAMOL [Concomitant]
     Active Substance: ACETAMINOPHEN
  15. GRASTOFIL [Concomitant]
     Active Substance: FILGRASTIM
     Dosage: SINGLE USE PRE?FILLED SYRINGE, SOLUTION INTRAVENOUS
  16. RANITIDINE. [Concomitant]
     Active Substance: RANITIDINE
  17. GLUCOSE [Concomitant]
     Active Substance: DEXTROSE
     Dosage: 5% IN WATER, SOLUTION INTRAVENOUS
  18. DIAZEPAM. [Concomitant]
     Active Substance: DIAZEPAM
  19. GLYBURIDE. [Concomitant]
     Active Substance: GLYBURIDE
  20. GRAVOL [Concomitant]
     Active Substance: DIMENHYDRINATE
  21. ONDANSETRON [Concomitant]
     Active Substance: ONDANSETRON
  22. PERINDOPRIL [Concomitant]
     Active Substance: PERINDOPRIL
  23. METHOTREXATE. [Suspect]
     Active Substance: METHOTREXATE
     Indication: DIFFUSE LARGE B-CELL LYMPHOMA
     Dosage: SOLUTION INTRA? ARTERIAL
     Route: 013
  24. PIOGLITAZONE/PIOGLITAZONE HYDROCHLORIDE [Concomitant]
     Active Substance: PIOGLITAZONE HYDROCHLORIDE
  25. PREGABALIN. [Concomitant]
     Active Substance: PREGABALIN
  26. CARBOPLATIN. [Suspect]
     Active Substance: CARBOPLATIN
     Indication: DIFFUSE LARGE B-CELL LYMPHOMA
     Dosage: SOLUTION INTRAVENOUS, ONCE
     Route: 013
  27. DEXAMETHASONE. [Concomitant]
     Active Substance: DEXAMETHASONE
     Route: 065
  28. JANUVIA [Concomitant]
     Active Substance: SITAGLIPTIN PHOSPHATE
     Route: 065
  29. LEUCOVORIN. [Concomitant]
     Active Substance: LEUCOVORIN
  30. MAXERAN [Concomitant]
     Active Substance: METOCLOPRAMIDE HYDROCHLORIDE
  31. NADOLOL. [Concomitant]
     Active Substance: NADOLOL

REACTIONS (18)
  - Hypoalbuminaemia [Recovering/Resolving]
  - Iatrogenic injury [Recovering/Resolving]
  - Toxic encephalopathy [Recovering/Resolving]
  - Urethritis [Recovering/Resolving]
  - Pancytopenia [Recovering/Resolving]
  - Renal tubular necrosis [Recovering/Resolving]
  - Acute pulmonary oedema [Recovering/Resolving]
  - Delirium [Recovering/Resolving]
  - Myelosuppression [Recovering/Resolving]
  - Acute kidney injury [Recovering/Resolving]
  - Altered state of consciousness [Recovering/Resolving]
  - Nephropathy toxic [Recovering/Resolving]
  - Off label use [Unknown]
  - Neurological decompensation [Recovering/Resolving]
  - Confusional state [Recovering/Resolving]
  - Febrile neutropenia [Recovering/Resolving]
  - Mucosal inflammation [Recovering/Resolving]
  - Toxicity to various agents [Recovering/Resolving]
